FAERS Safety Report 5390747-5 (Version None)
Quarter: 2007Q3

REPORT INFORMATION
  Report Type: 
  Country: None (occurrence: None)
  Receive Date: 20070718
  Receipt Date: 20070706
  Transmission Date: 20080115
  Serious: Yes (Hospitalization)
  Sender: FDA-Public Use
  Company Number: US-ELI_LILLY_AND_COMPANY-US200707001623

PATIENT
  Sex: Female

DRUGS (1)
  1. FORTEO [Suspect]
     Dates: start: 20061101

REACTIONS (5)
  - BLOOD PRESSURE DECREASED [None]
  - CHOLECYSTECTOMY [None]
  - DEMENTIA [None]
  - FALL [None]
  - LOSS OF CONSCIOUSNESS [None]
